FAERS Safety Report 12391917 (Version 1)
Quarter: 2016Q2

REPORT INFORMATION
  Report Type: Report from Study
  Country: US (occurrence: US)
  Receive Date: 20160523
  Receipt Date: 20160523
  Transmission Date: 20160815
  Serious: No
  Sender: FDA-Public Use
  Company Number: US-AMGEN-USASL2016063069

PATIENT
  Age: 53 Year
  Sex: Female

DRUGS (1)
  1. ENBREL [Suspect]
     Active Substance: ETANERCEPT
     Indication: PRODUCT USED FOR UNKNOWN INDICATION
     Dosage: UNK
     Route: 065
     Dates: start: 2016

REACTIONS (6)
  - Nervousness [Unknown]
  - Injection site erythema [Unknown]
  - Injection site pruritus [Unknown]
  - Hunger [Unknown]
  - Injection site induration [Unknown]
  - Fatigue [Unknown]

NARRATIVE: CASE EVENT DATE: 2016
